FAERS Safety Report 10983390 (Version 2)
Quarter: 2015Q2

REPORT INFORMATION
  Report Type: Spontaneous
  Country: US (occurrence: US)
  Receive Date: 20150403
  Receipt Date: 20150602
  Transmission Date: 20150821
  Serious: Yes (Other)
  Sender: FDA-Public Use
  Company Number: US-ALLERGAN-1505612US

PATIENT
  Age: 76 Year
  Sex: Female

DRUGS (3)
  1. LUMIGAN [Suspect]
     Active Substance: BIMATOPROST
     Indication: GLAUCOMA
     Dosage: 2 GTT, QHS
     Route: 047
  2. WARFARIN [Concomitant]
     Active Substance: WARFARIN
  3. COREG [Concomitant]
     Active Substance: CARVEDILOL
     Indication: ATRIAL FIBRILLATION

REACTIONS (7)
  - Disability [Unknown]
  - Pain of skin [Unknown]
  - Tremor [Unknown]
  - Cerebrovascular accident [Unknown]
  - Paraesthesia [Unknown]
  - Erythema [Unknown]
  - Medication error [Unknown]

NARRATIVE: CASE EVENT DATE: 2013
